FAERS Safety Report 8594018-5 (Version None)
Quarter: 2012Q3

REPORT INFORMATION
  Report Type: 
  Country: None (occurrence: None)
  Receive Date: 20120814
  Receipt Date: 20120808
  Transmission Date: 20120928
  Serious: Yes (Other)
  Sender: FDA-Public Use
  Company Number: JP-VERTEX PHARMACEUTICALS INC.-AE-2012-004790

PATIENT
  Age: 59 Year
  Sex: Female

DRUGS (21)
  1. TELAVIC [Suspect]
     Route: 048
     Dates: start: 20120407, end: 20120411
  2. PEGINTERFERON ALFA-2B [Concomitant]
     Indication: HEPATITIS C
     Route: 058
     Dates: start: 20120213, end: 20120412
  3. LANSOPRAZOLE [Concomitant]
     Route: 048
     Dates: start: 20120223, end: 20120301
  4. RABEPRAZOLE SODIUM [Concomitant]
     Route: 048
     Dates: end: 20120412
  5. RIZE [Concomitant]
     Route: 048
     Dates: start: 20120414, end: 20120419
  6. TELAVIC [Suspect]
     Route: 048
     Dates: start: 20120412, end: 20120419
  7. RIBAVIRIN [Concomitant]
     Indication: HEPATITIS C
     Route: 048
     Dates: start: 20120213, end: 20120322
  8. URSO 250 [Concomitant]
     Route: 048
  9. GLYCYRON [Concomitant]
     Route: 048
  10. TELAVIC [Suspect]
     Indication: HEPATITIS C
     Route: 048
     Dates: start: 20120213, end: 20120406
  11. RIBAVIRIN [Concomitant]
     Route: 048
     Dates: start: 20120329, end: 20120419
  12. FAMOTIDINE [Concomitant]
     Route: 048
     Dates: start: 20120216, end: 20120223
  13. MOTILIUM [Concomitant]
     Route: 048
     Dates: end: 20120412
  14. PROCHLORPERAZINE [Concomitant]
     Route: 048
     Dates: start: 20120322
  15. ACETAMINOPHEN [Concomitant]
     Route: 048
     Dates: end: 20120419
  16. RIBAVIRIN [Concomitant]
     Route: 048
     Dates: start: 20120323, end: 20120329
  17. DIOVAN [Concomitant]
     Route: 048
  18. RABEPRAZOLE SODIUM [Concomitant]
     Route: 048
     Dates: start: 20120301
  19. MOTILIUM [Concomitant]
     Route: 048
     Dates: start: 20120217, end: 20120301
  20. ACETAMINOPHEN [Concomitant]
     Route: 048
     Dates: start: 20120414, end: 20120419
  21. PROCHLORPERAZINE [Concomitant]
     Route: 048
     Dates: end: 20120412

REACTIONS (1)
  - SKIN EXFOLIATION [None]
